FAERS Safety Report 21280661 (Version 2)
Quarter: 2022Q4

REPORT INFORMATION
  Report Type: Report from Study
  Country: US (occurrence: US)
  Receive Date: 20220901
  Receipt Date: 20221102
  Transmission Date: 20230113
  Serious: Yes (Other)
  Sender: FDA-Public Use
  Company Number: US-TAKEDA-2022TUS032374

PATIENT
  Sex: Female

DRUGS (12)
  1. TEDUGLUTIDE [Suspect]
     Active Substance: TEDUGLUTIDE
     Indication: Short-bowel syndrome
     Dosage: 6.36 MILLIGRAM, QD
     Route: 058
     Dates: start: 20220428
  2. TEDUGLUTIDE [Suspect]
     Active Substance: TEDUGLUTIDE
     Indication: Short-bowel syndrome
     Dosage: 6.36 MILLIGRAM, QD
     Route: 058
     Dates: start: 20220428
  3. TEDUGLUTIDE [Suspect]
     Active Substance: TEDUGLUTIDE
     Indication: Short-bowel syndrome
     Dosage: 6.36 MILLIGRAM, QD
     Route: 058
     Dates: start: 20220428
  4. TEDUGLUTIDE [Suspect]
     Active Substance: TEDUGLUTIDE
     Indication: Short-bowel syndrome
     Dosage: 6.36 MILLIGRAM, QD
     Route: 058
     Dates: start: 20220428
  5. TEDUGLUTIDE [Suspect]
     Active Substance: TEDUGLUTIDE
     Dosage: 6.36 MILLIGRAM, QD
     Route: 058
     Dates: start: 20220429
  6. TEDUGLUTIDE [Suspect]
     Active Substance: TEDUGLUTIDE
     Dosage: 6.36 MILLIGRAM, QD
     Route: 058
     Dates: start: 20220429
  7. TEDUGLUTIDE [Suspect]
     Active Substance: TEDUGLUTIDE
     Dosage: 6.36 MILLIGRAM, QD
     Route: 058
     Dates: start: 20220429
  8. TEDUGLUTIDE [Suspect]
     Active Substance: TEDUGLUTIDE
     Dosage: 6.36 MILLIGRAM, QD
     Route: 058
     Dates: start: 20220429
  9. TEDUGLUTIDE [Suspect]
     Active Substance: TEDUGLUTIDE
     Dosage: 6.36 MILLIGRAM, QD
     Route: 058
     Dates: start: 20220419
  10. TEDUGLUTIDE [Suspect]
     Active Substance: TEDUGLUTIDE
     Dosage: 6.36 MILLIGRAM, QD
     Route: 058
     Dates: start: 20220419
  11. TEDUGLUTIDE [Suspect]
     Active Substance: TEDUGLUTIDE
     Dosage: 6.36 MILLIGRAM, QD
     Route: 058
     Dates: start: 20220419
  12. TEDUGLUTIDE [Suspect]
     Active Substance: TEDUGLUTIDE
     Dosage: 6.36 MILLIGRAM, QD
     Route: 058
     Dates: start: 20220419

REACTIONS (8)
  - Crohn^s disease [Unknown]
  - Blood iron decreased [Unknown]
  - Panic attack [Unknown]
  - Stress [Unknown]
  - Ill-defined disorder [Unknown]
  - Abdominal pain upper [Unknown]
  - Abdominal pain [Unknown]
  - Depression [Unknown]
